FAERS Safety Report 10376155 (Version 2)
Quarter: 2014Q3

REPORT INFORMATION
  Report Type: Spontaneous
  Country: US (occurrence: US)
  Receive Date: 20140811
  Receipt Date: 20140811
  Transmission Date: 20150326
  Serious: No
  Sender: FDA-Public Use
  Company Number: US-ASTRAZENECA-2013SE48654

PATIENT
  Age: 70 Year
  Sex: Female
  Weight: 65.8 kg

DRUGS (4)
  1. ATIVAN [Concomitant]
     Active Substance: LORAZEPAM
  2. CELEBREX [Concomitant]
     Active Substance: CELECOXIB
  3. ARIMIDEX [Suspect]
     Active Substance: ANASTROZOLE
     Indication: BREAST CANCER FEMALE
     Route: 048
     Dates: start: 201309
  4. GLAUCOMA DROPS [Concomitant]
     Indication: GLAUCOMA

REACTIONS (2)
  - Bone loss [Unknown]
  - Adverse event [Unknown]
